APPROVED DRUG PRODUCT: PROPULSID
Active Ingredient: CISAPRIDE MONOHYDRATE
Strength: EQ 20MG BASE
Dosage Form/Route: TABLET;ORAL
Application: N020210 | Product #002
Applicant: JANSSEN PHARMACEUTICALS INC
Approved: Dec 23, 1993 | RLD: No | RS: No | Type: DISCN